FAERS Safety Report 20017241 (Version 2)
Quarter: 2021Q4

REPORT INFORMATION
  Report Type: Report from Study
  Country: US (occurrence: US)
  Receive Date: 20211030
  Receipt Date: 20211101
  Transmission Date: 20220303
  Serious: No
  Sender: FDA-Public Use
  Company Number: US-NOVARTISTESTPH-NVSC2021US247888

PATIENT
  Age: 44 Year
  Sex: Female

DRUGS (1)
  1. KESIMPTA [Suspect]
     Active Substance: OFATUMUMAB
     Indication: Product used for unknown indication
     Dosage: UNK, 20MG/0.4ML
     Route: 065

REACTIONS (2)
  - Muscular weakness [Recovered/Resolved]
  - Product administration error [Recovered/Resolved]

NARRATIVE: CASE EVENT DATE: 20211027
